FAERS Safety Report 9815048 (Version 2)
Quarter: 2014Q1

REPORT INFORMATION
  Report Type: Spontaneous
  Country: US (occurrence: US)
  Receive Date: 20140114
  Receipt Date: 20140204
  Transmission Date: 20141002
  Serious: No
  Sender: FDA-Public Use
  Company Number: US-009507513-1401USA001744

PATIENT
  Age: 69 Year
  Sex: Male

DRUGS (6)
  1. PEGINTRON [Suspect]
     Indication: HEPATITIS C
     Dosage: 0.5 ML, QW
     Route: 058
     Dates: start: 20131230
  2. RIBAVIRIN (WARRICK) [Suspect]
     Indication: HEPATITIS C
     Dosage: ONE PILL, BID
     Route: 048
     Dates: start: 20131230
  3. PROPRANOLOL HYDROCHLORIDE [Concomitant]
     Dosage: UNK, BID
  4. CHOLECALCIFEROL [Concomitant]
     Dosage: STRENGTH 1000 UNITS, QD
  5. CYANOCOBALAMIN [Concomitant]
     Dosage: UNK, QD
  6. PANTOPRAZOLE SODIUM [Concomitant]
     Dosage: UNK, QD

REACTIONS (5)
  - Influenza like illness [Recovering/Resolving]
  - Headache [Recovering/Resolving]
  - Pyrexia [Recovering/Resolving]
  - Injection site erythema [Unknown]
  - Rash [Not Recovered/Not Resolved]
